FAERS Safety Report 8020962-3 (Version None)
Quarter: 2011Q4

REPORT INFORMATION
  Report Type: 
  Country: None (occurrence: None)
  Receive Date: 20111228
  Receipt Date: 20111220
  Transmission Date: 20120403
  Serious: Yes (Death)
  Sender: FDA-Public Use
  Company Number: ADR-2011-11723

PATIENT
  Age: 67 Year
  Sex: Male

DRUGS (4)
  1. BUPIVACAINE HCL [Concomitant]
  2. BACLOFEN [Suspect]
     Indication: CANCER PAIN
     Dosage: 76.58MCG/DAY
  3. BACLOFEN [Suspect]
     Indication: BLADDER PAIN
     Dosage: 76.58MCG/DAY
  4. DILAUDID [Concomitant]

REACTIONS (3)
  - NEOPLASM PROGRESSION [None]
  - BLADDER CANCER [None]
  - METASTATIC NEOPLASM [None]
